FAERS Safety Report 4289674-6 (Version None)
Quarter: 2004Q1

REPORT INFORMATION
  Report Type: 
  Country: None (occurrence: None)
  Receive Date: 20040126
  Receipt Date: 20031001
  Transmission Date: 20041129
  Serious: No
  Sender: FDA-Public Use
  Company Number: USA031048798

PATIENT
  Age: 84 Year
  Sex: Female

DRUGS (1)
  1. FORTEO [Suspect]
     Dates: start: 20031001, end: 20031001

REACTIONS (4)
  - DIZZINESS [None]
  - DRY MOUTH [None]
  - DRY THROAT [None]
  - FLUSHING [None]
